FAERS Safety Report 5146677-7 (Version None)
Quarter: 2006Q4

REPORT INFORMATION
  Report Type: 
  Country: None (occurrence: None)
  Receive Date: 20061109
  Receipt Date: 20061027
  Transmission Date: 20070319
  Serious: Yes (Other)
  Sender: FDA-Public Use
  Company Number: PHNU2006DE03555

PATIENT
  Age: 63 Year
  Sex: Male
  Weight: 87 kg

DRUGS (13)
  1. DESFERAL [Suspect]
     Indication: HAEMOSIDEROSIS
     Dosage: 0.5 G, QW
     Route: 065
     Dates: start: 20060629, end: 20061017
  2. LEVOTHYROXINE SODIUM [Concomitant]
     Dosage: 100 MG, QD
     Route: 048
  3. CALCIMAGON [Concomitant]
     Dosage: 4000 MG/DAY
     Route: 048
  4. FUSID [Concomitant]
     Dosage: 250 MG, BID
     Route: 048
  5. XIPAMIDE [Concomitant]
     Dosage: 20 MG, QD
     Route: 048
  6. RENAGEL [Concomitant]
     Dosage: 1600 MG, BID
     Route: 048
  7. ATROVENT [Concomitant]
     Dosage: 1 DF, BID
  8. PANTORC [Concomitant]
     Dosage: 20 MG, QD
     Route: 048
  9. AMBROXOL [Concomitant]
     Dosage: 1 DF, TID
     Route: 048
  10. ASCORBIC ACID [Concomitant]
     Dosage: 0.2 UNK, TIW
     Route: 065
  11. FERRLECIT [Concomitant]
     Dosage: 1 DF, BIW
     Route: 065
  12. VIGANTOLETTEN [Concomitant]
     Route: 048
     Dates: end: 20061012
  13. BONDIOL [Concomitant]
     Dosage: 0.25 UNK, TIW
     Route: 048

REACTIONS (4)
  - ALANINE AMINOTRANSFERASE INCREASED [None]
  - ASPARTATE AMINOTRANSFERASE INCREASED [None]
  - GAMMA-GLUTAMYLTRANSFERASE INCREASED [None]
  - TRANSAMINASES INCREASED [None]
